FAERS Safety Report 22283194 (Version 1)
Quarter: 2023Q2

REPORT INFORMATION
  Report Type: Spontaneous
  Country: US (occurrence: US)
  Receive Date: 20230504
  Receipt Date: 20230504
  Transmission Date: 20230721
  Serious: No
  Sender: FDA-Public Use
  Company Number: US-SA-SAC20230502000663

PATIENT
  Age: 81 Year
  Sex: Male

DRUGS (17)
  1. DUPIXENT [Suspect]
     Active Substance: DUPILUMAB
     Indication: Asthma
     Dosage: 300 MG, QOW
     Route: 058
  2. ALBUTEROL SULFATE [Concomitant]
     Active Substance: ALBUTEROL SULFATE
  3. ATROVENT [Concomitant]
     Active Substance: IPRATROPIUM BROMIDE
  4. ALBUTEROL [Concomitant]
     Active Substance: ALBUTEROL
  5. BUPROPION [Concomitant]
     Active Substance: BUPROPION
  6. CLARITIN-D NOS [Concomitant]
     Active Substance: LORATADINE\PSEUDOEPHEDRINE SULFATE
  7. DULOXETINE [Concomitant]
     Active Substance: DULOXETINE
  8. FLUOROURACIL [Concomitant]
     Active Substance: FLUOROURACIL
  9. GABAPENTIN [Concomitant]
     Active Substance: GABAPENTIN
  10. JUBLIA [Concomitant]
     Active Substance: EFINACONAZOLE
  11. KETOCONAZOLE [Concomitant]
     Active Substance: KETOCONAZOLE
  12. NASACORT [Concomitant]
     Active Substance: TRIAMCINOLONE ACETONIDE
  13. PRAMIPEXOLE [Concomitant]
     Active Substance: PRAMIPEXOLE
  14. PREDNISONE [Concomitant]
     Active Substance: PREDNISONE
  15. SYMBICORT [Concomitant]
     Active Substance: BUDESONIDE\FORMOTEROL FUMARATE DIHYDRATE
  16. TRAZODONE [Concomitant]
     Active Substance: TRAZODONE HYDROCHLORIDE
  17. VALACYCLOVIR [Concomitant]
     Active Substance: VALACYCLOVIR HYDROCHLORIDE

REACTIONS (2)
  - Injection site discolouration [Unknown]
  - Injection site bruising [Unknown]

NARRATIVE: CASE EVENT DATE: 20230421
